FAERS Safety Report 12717468 (Version 2)
Quarter: 2016Q3

REPORT INFORMATION
  Report Type: Spontaneous
  Country: JP (occurrence: JP)
  Receive Date: 20160906
  Receipt Date: 20160916
  Transmission Date: 20161109
  Serious: Yes (Disabling)
  Sender: FDA-Public Use
  Company Number: JP-SUN PHARMACEUTICAL INDUSTRIES LTD-2016RR-122221

PATIENT
  Age: 50 Year
  Sex: Female

DRUGS (6)
  1. PAROXETINE. [Suspect]
     Active Substance: PAROXETINE
     Indication: OBSESSIVE-COMPULSIVE DISORDER
     Dosage: 40 MG, DAILY
     Route: 065
  2. LUVOX [Suspect]
     Active Substance: FLUVOXAMINE MALEATE
     Indication: OBSESSIVE-COMPULSIVE DISORDER
     Dosage: 100 MG, DAILY
     Route: 065
  3. SERTRALINE [Suspect]
     Active Substance: SERTRALINE HYDROCHLORIDE
     Indication: OBSESSIVE-COMPULSIVE DISORDER
     Dosage: 100 MG, DAILY
     Route: 065
  4. CLOMIPRAMINE [Suspect]
     Active Substance: CLOMIPRAMINE
     Indication: OBSESSIVE-COMPULSIVE DISORDER
     Dosage: 150 MG, DAILY
     Route: 065
  5. LEXAPRO [Interacting]
     Active Substance: ESCITALOPRAM OXALATE
     Indication: OBSESSIVE-COMPULSIVE DISORDER
     Dosage: DOSE INCREASED BY 10 MG/DAY EVERY 4 WEEKS
     Route: 065
  6. LUVOX [Interacting]
     Active Substance: FLUVOXAMINE MALEATE
     Indication: OBSESSIVE-COMPULSIVE DISORDER
     Dosage: 25 MG, DAILY
     Route: 065

REACTIONS (5)
  - Urinary incontinence [Unknown]
  - Off label use [Unknown]
  - Therapeutic response unexpected [Unknown]
  - Inhibitory drug interaction [Unknown]
  - Therapeutic product ineffective [Unknown]

NARRATIVE: CASE EVENT DATE: 201601
